FAERS Safety Report 16188953 (Version 1)
Quarter: 2019Q2

REPORT INFORMATION
  Report Type: Spontaneous
  Country: US (occurrence: US)
  Receive Date: 20190411
  Receipt Date: 20190411
  Transmission Date: 20190711
  Serious: Yes (Other)
  Sender: FDA-Public Use
  Company Number: None

PATIENT
  Age: 62 Year
  Sex: Female
  Weight: 80.1 kg

DRUGS (2)
  1. PREDNISONE 20 MG TABLET [Suspect]
     Active Substance: PREDNISONE
     Indication: NASOPHARYNGITIS
     Dosage: ?          QUANTITY:2 TABLET(S);?
     Route: 048
     Dates: start: 20190407, end: 20190409
  2. ALBUTEROL. [Concomitant]
     Active Substance: ALBUTEROL

REACTIONS (5)
  - Eye infection [None]
  - Nasopharyngitis [None]
  - Herpes simplex [None]
  - Epistaxis [None]
  - Nasal mucosal blistering [None]

NARRATIVE: CASE EVENT DATE: 20190407
